FAERS Safety Report 25340361 (Version 2)
Quarter: 2025Q3

REPORT INFORMATION
  Report Type: Spontaneous
  Country: US (occurrence: US)
  Receive Date: 20250521
  Receipt Date: 20250822
  Transmission Date: 20251020
  Serious: No
  Sender: AZURITY PHARMACEUTICALS
  Company Number: US-AZURITY PHARMACEUTICALS, INC.-AZR202505-001381

PATIENT
  Sex: Male

DRUGS (1)
  1. DANZITEN [Suspect]
     Active Substance: NILOTINIB
     Indication: Chronic myelomonocytic leukaemia
     Route: 065
     Dates: start: 20250416

REACTIONS (2)
  - Hypertension [Unknown]
  - Blood glucose increased [Unknown]

NARRATIVE: CASE EVENT DATE: 20250101
